FAERS Safety Report 7426040-6 (Version None)
Quarter: 2011Q2

REPORT INFORMATION
  Report Type: 
  Country: None (occurrence: None)
  Receive Date: 20110420
  Receipt Date: 20101019
  Transmission Date: 20111010
  Serious: Yes (Hospitalization, Other)
  Sender: FDA-Public Use
  Company Number: US-BAYER-201027041NA

PATIENT
  Age: 27 Year
  Sex: Female
  Weight: 72.562 kg

DRUGS (3)
  1. YAZ [Suspect]
     Indication: CONTRACEPTION
     Dosage: UNK
     Route: 048
     Dates: start: 20060801, end: 20060915
  2. ZOLOFT [Concomitant]
  3. SERTRALINE [Concomitant]

REACTIONS (8)
  - OEDEMA PERIPHERAL [None]
  - ILIAC VEIN OCCLUSION [None]
  - DEEP VEIN THROMBOSIS [None]
  - ANXIETY [None]
  - POST THROMBOTIC SYNDROME [None]
  - PAIN IN EXTREMITY [None]
  - GAIT DISTURBANCE [None]
  - LIMB DISCOMFORT [None]
